FAERS Safety Report 8479148-0 (Version None)
Quarter: 2012Q2

REPORT INFORMATION
  Report Type: 
  Country: None (occurrence: None)
  Receive Date: 20120629
  Receipt Date: 20120618
  Transmission Date: 20120825
  Serious: Yes (Hospitalization)
  Sender: FDA-Public Use
  Company Number: JP-VERTEX PHARMACEUTICALS INC.-AE-2012-003669

PATIENT
  Age: 67 Year
  Sex: Male

DRUGS (7)
  1. TELAVIC (TELAPREVIR) [Suspect]
     Indication: HEPATITIS C
     Route: 048
     Dates: start: 20120228, end: 20120308
  2. REBETOL [Concomitant]
     Indication: HEPATITIS C
     Route: 048
     Dates: start: 20120228, end: 20120308
  3. FULMETA [Concomitant]
     Route: 061
     Dates: start: 20120308
  4. PEG-INTRON [Concomitant]
     Indication: HEPATITIS C
     Route: 058
     Dates: start: 20120228, end: 20120308
  5. ALLEGRA [Concomitant]
     Route: 048
     Dates: start: 20120308, end: 20120314
  6. URDESTON [Concomitant]
     Route: 048
  7. GLYCRON [Concomitant]
     Route: 048

REACTIONS (1)
  - DRUG ERUPTION [None]
